FAERS Safety Report 17457369 (Version 2)
Quarter: 2020Q1

REPORT INFORMATION
  Report Type: Spontaneous
  Country: DE (occurrence: DE)
  Receive Date: 20200225
  Receipt Date: 20200304
  Transmission Date: 20200409
  Serious: Yes (Hospitalization)
  Sender: FDA-Public Use
  Company Number: DE-MYLANLABS-2020M1019513

PATIENT
  Sex: Female
  Weight: 50 kg

DRUGS (4)
  1. PEGFILGRASTIM [Suspect]
     Active Substance: PEGFILGRASTIM
     Indication: PRODUCT USED FOR UNKNOWN INDICATION
     Dosage: 6 MILLIGRAM, CYCLE (THIRD CYCLE) STRENGTH: 6 MG
     Route: 058
     Dates: start: 20191204
  2. PEGFILGRASTIM [Suspect]
     Active Substance: PEGFILGRASTIM
     Dosage: UNK, CYCLE (FIRST CYCLE)STRENGTH: 6 MG
     Route: 058
     Dates: start: 20191107
  3. PEGFILGRASTIM [Suspect]
     Active Substance: PEGFILGRASTIM
     Dosage: UNK, CYCLE (SECOND CYCLE)STRENGTH: 6 MG
     Route: 058
     Dates: start: 20191121
  4. PEGFILGRASTIM [Suspect]
     Active Substance: PEGFILGRASTIM
     Dosage: 6 MILLIGRAM  STRENGTH: 6 MG FOURTH CYCLE
     Route: 058
     Dates: start: 20191226

REACTIONS (2)
  - Pancytopenia [Recovered/Resolved]
  - General physical health deterioration [Recovered/Resolved]

NARRATIVE: CASE EVENT DATE: 20191210
